FAERS Safety Report 14257465 (Version 6)
Quarter: 2018Q2

REPORT INFORMATION
  Report Type: Spontaneous
  Country: US (occurrence: US)
  Receive Date: 20171207
  Receipt Date: 20180621
  Transmission Date: 20180711
  Serious: No
  Sender: FDA-Public Use
  Company Number: US-ASTRAZENECA-2017SF24175

PATIENT
  Age: 74 Year
  Sex: Female
  Weight: 99.3 kg

DRUGS (1)
  1. SYMBICORT [Suspect]
     Active Substance: BUDESONIDE\FORMOTEROL FUMARATE DIHYDRATE
     Indication: ASTHMA
     Dosage: 80/4.5 MCG, TWO TIMES A DAY
     Route: 055
     Dates: start: 2011

REACTIONS (19)
  - Off label use of device [Not Recovered/Not Resolved]
  - Fatigue [Not Recovered/Not Resolved]
  - Malaise [Unknown]
  - Wrong technique in device usage process [Unknown]
  - Product packaging quantity issue [Unknown]
  - Device failure [Unknown]
  - Sciatica [Unknown]
  - Drug ineffective [Unknown]
  - Myalgia [Unknown]
  - Bronchitis [Unknown]
  - Hunger [Unknown]
  - Wheezing [Unknown]
  - Product use issue [Not Recovered/Not Resolved]
  - Blood glucose decreased [Unknown]
  - Insomnia [Unknown]
  - Arthritis [Unknown]
  - Intentional device misuse [Not Recovered/Not Resolved]
  - Asthma [Unknown]
  - Drug dose omission [Unknown]

NARRATIVE: CASE EVENT DATE: 2011
